FAERS Safety Report 4503059-6 (Version None)
Quarter: 2004Q4

REPORT INFORMATION
  Report Type: 
  Country: None (occurrence: None)
  Receive Date: 20041116
  Receipt Date: 20041116
  Transmission Date: 20050328
  Serious: Yes (Life-Threatening, Hospitalization)
  Sender: FDA-Public Use
  Company Number: None

PATIENT
  Age: 70 Year
  Sex: Male
  Weight: 87.5442 kg

DRUGS (4)
  1. ERBITUX (CETUXIMAB) [Suspect]
     Indication: COLON CANCER METASTATIC
     Dosage: 800 MG IV X 1
     Route: 042
     Dates: start: 20040319
  2. ZOFRAN [Concomitant]
  3. DECADRON [Concomitant]
  4. BENADRYL [Concomitant]

REACTIONS (5)
  - CHILLS [None]
  - DYSPNOEA [None]
  - HYPOTENSION [None]
  - INFUSION RELATED REACTION [None]
  - LOSS OF CONSCIOUSNESS [None]
